FAERS Safety Report 11399075 (Version 1)
Quarter: 2015Q3

REPORT INFORMATION
  Report Type: Spontaneous
  Country: US (occurrence: None)
  Receive Date: 20150819
  Receipt Date: 20150819
  Transmission Date: 20151125
  Serious: Yes (Disabling, Other)
  Sender: FDA-Public Use
  Company Number: None

PATIENT
  Age: 29 Year
  Sex: Female
  Weight: 81.65 kg

DRUGS (1)
  1. MIRENA [Suspect]
     Active Substance: LEVONORGESTREL
     Indication: CONTRACEPTION
     Route: 067
     Dates: start: 20120116, end: 20150407

REACTIONS (7)
  - Migraine [None]
  - Vomiting [None]
  - Device dislocation [None]
  - Abdominal pain [None]
  - Vision blurred [None]
  - Dizziness [None]
  - Visual impairment [None]

NARRATIVE: CASE EVENT DATE: 20150807
